FAERS Safety Report 5493744-4 (Version None)
Quarter: 2007Q4

REPORT INFORMATION
  Report Type: 
  Country: None (occurrence: None)
  Receive Date: 20071015
  Receipt Date: 20070625
  Transmission Date: 20080405
  Serious: No
  Sender: FDA-Public Use
  Company Number: 2007SP002105

PATIENT
  Age: 69 Year
  Sex: Male
  Weight: 108.8633 kg

DRUGS (5)
  1. LUNESTA [Suspect]
     Indication: INSOMNIA
     Dosage: 3 MG; PRN; ORAL; 3 MG; HS; ORAL
     Route: 048
     Dates: start: 20070602, end: 20070601
  2. LUNESTA [Suspect]
     Indication: INSOMNIA
     Dosage: 3 MG; PRN; ORAL; 3 MG; HS; ORAL
     Route: 048
     Dates: start: 20070615
  3. EXCEDRIN (MIGRAINE) [Concomitant]
  4. METFORMIN HCL [Concomitant]
  5. LISINOPRIL [Concomitant]

REACTIONS (1)
  - INSOMNIA [None]
